FAERS Safety Report 7391362-4 (Version None)
Quarter: 2011Q2

REPORT INFORMATION
  Report Type: 
  Country: None (occurrence: None)
  Receive Date: 20110404
  Receipt Date: 20110307
  Transmission Date: 20111010
  Serious: No
  Sender: FDA-Public Use
  Company Number: US-B.I. PHARMACEUTICALS,INC./RIDGEFIELD-2011-BP-07120BP

PATIENT
  Age: 85 Year
  Sex: Male

DRUGS (4)
  1. PRADAXA [Suspect]
     Indication: ATRIAL FIBRILLATION
     Dosage: 300 MG
     Route: 048
     Dates: start: 20110302
  2. ASPIRIN [Concomitant]
     Dosage: 325 MG
  3. IRON [Concomitant]
  4. MULTIVITAMIN [Concomitant]

REACTIONS (2)
  - DIZZINESS [None]
  - MALAISE [None]
